FAERS Safety Report 6035356-X (Version None)
Quarter: 2009Q1

REPORT INFORMATION
  Report Type: 
  Country: None (occurrence: None)
  Receive Date: 20090109
  Receipt Date: 20090109
  Transmission Date: 20090719
  Serious: No
  Sender: FDA-Public Use
  Company Number: None

PATIENT
  Sex: Female
  Weight: 91.36 kg

DRUGS (7)
  1. VERAPAMIL [Suspect]
     Dosage: 120MG TABLET SA VARIABLE
     Route: 048
     Dates: start: 20081107, end: 20090108
  2. CALCIUM + D (500 ELEM. CA) (CALCIUM CARBONATE 1250 MG (500MG ELEM CA)/ [Concomitant]
  3. CITALOPRAM HYDROBROMIDE [Concomitant]
  4. COMPRESSION STOCKINGS [Concomitant]
  5. FLUNISOLIDE NASAL (FLUNISOLIDE NASAL) [Concomitant]
  6. GEODON [Concomitant]
  7. KETOCONAZOLE [Concomitant]

REACTIONS (1)
  - HEADACHE [None]
